FAERS Safety Report 7945371 (Version 3)
Quarter: 2013Q4

REPORT INFORMATION
  Report Type: Spontaneous
  Country: US (occurrence: US)
  Receive Date: 20110516
  Receipt Date: 20131118
  Transmission Date: 20140711
  Serious: Yes (Hospitalization)
  Sender: FDA-Public Use
  Company Number: US-BAYER-201037608NA

PATIENT
  Age: 21 Year
  Sex: Female
  Weight: 95.24 kg

DRUGS (9)
  1. YASMIN [Suspect]
     Indication: ACNE
  2. YASMIN [Suspect]
     Indication: PREMENSTRUAL SYNDROME
  3. ALTACE [Concomitant]
  4. POTASSIUM [POTASSIUM] [Concomitant]
  5. DIGOXIN [Concomitant]
  6. K-CON [Concomitant]
     Dosage: 20 MEQ, QD
  7. MACROBID [Concomitant]
     Dosage: 100 MG, UNK
     Dates: start: 20041016
  8. DARVOCET [Concomitant]
     Dosage: UNK
     Dates: start: 20041016
  9. PRENATE [FOLIC ACID,IRON,MINERALS NOS,VITAMINS NOS] [Concomitant]
     Dosage: UNK
     Dates: start: 20041020

REACTIONS (3)
  - Injury [None]
  - Gallbladder disorder [None]
  - Cholecystitis acute [None]
